FAERS Safety Report 5672063-7 (Version None)
Quarter: 2008Q1

REPORT INFORMATION
  Report Type: 
  Country: None (occurrence: None)
  Receive Date: 20080314
  Receipt Date: 20080229
  Transmission Date: 20080703
  Serious: Yes (Hospitalization, Other)
  Sender: FDA-Public Use
  Company Number: 2008-00603

PATIENT
  Age: 1 Year
  Sex: Female

DRUGS (5)
  1. VELCADE [Suspect]
     Indication: MULTIPLE MYELOMA
     Dosage: INTRAVENOUS
     Route: 042
     Dates: start: 20070914, end: 20071029
  2. REVLIMID [Suspect]
     Indication: MULTIPLE MYELOMA
     Dosage: ORAL
     Route: 048
     Dates: start: 20071026, end: 20071029
  3. AUGMENTIN '125' [Suspect]
     Indication: LUNG DISORDER
     Dosage: ORAL
     Route: 048
     Dates: start: 20071024, end: 20071031
  4. OFLOXACIN [Suspect]
     Indication: LUNG DISORDER
     Dosage: ORAL
     Route: 048
     Dates: start: 20071024, end: 20071031
  5. DEXAMETHASONE [Concomitant]

REACTIONS (8)
  - ANAEMIA [None]
  - DRUG EFFECT INCREASED [None]
  - HYPERTHERMIA [None]
  - PLATELET COUNT DECREASED [None]
  - PURPURA [None]
  - PYREXIA [None]
  - RASH ERYTHEMATOUS [None]
  - RASH MORBILLIFORM [None]
